FAERS Safety Report 16383197 (Version 1)
Quarter: 2019Q3

REPORT INFORMATION
  Report Type: Spontaneous
  Country: US (occurrence: US)
  Receive Date: 20190529
  Receipt Date: 20190529
  Transmission Date: 20191004
  Serious: No
  Sender: FDA-Public Use
  Company Number: None

PATIENT
  Age: 29 Year
  Sex: Male
  Weight: 151 kg

DRUGS (2)
  1. ADIPESSUM [Suspect]
     Active Substance: DIETARY SUPPLEMENT
     Indication: WEIGHT CONTROL
     Route: 048
  2. AMPHETAMINE [UNDECLARED INGREDIENT] [Suspect]
     Active Substance: AMPHETAMINE

REACTIONS (2)
  - Amphetamines positive [None]
  - Tachycardia [None]

NARRATIVE: CASE EVENT DATE: 20190529
